FAERS Safety Report 7206576-3 (Version None)
Quarter: 2011Q1

REPORT INFORMATION
  Report Type: 
  Country: None (occurrence: None)
  Receive Date: 20110103
  Receipt Date: 20101228
  Transmission Date: 20110831
  Serious: No
  Sender: FDA-Public Use
  Company Number: US-JNJFOC-20101209019

PATIENT
  Sex: Female
  Weight: 65.77 kg

DRUGS (8)
  1. FENTANYL-100 [Suspect]
     Indication: BACK PAIN
     Dosage: 25 UG/HR AND 12.5 UG/HR
     Route: 062
  2. PRILOSEC [Concomitant]
     Indication: GASTROOESOPHAGEAL REFLUX DISEASE
     Route: 048
  3. FENTANYL-100 [Suspect]
     Route: 062
  4. MOBIC [Concomitant]
     Indication: PAIN
     Route: 048
  5. TRAZODONE [Concomitant]
     Indication: DEPRESSION
     Dosage: ONE TABLET IN MORNING AND 2 TABLETS EVERY EVENING
     Route: 048
  6. GABAPENTIN [Concomitant]
     Indication: HYPOAESTHESIA
     Route: 048
  7. ATIVAN [Concomitant]
     Indication: ANXIETY
     Route: 048
  8. FENTANYL-100 [Suspect]
     Route: 062

REACTIONS (8)
  - DECREASED APPETITE [None]
  - ABNORMAL LOSS OF WEIGHT [None]
  - APPLICATION SITE PRURITUS [None]
  - APPLICATION SITE RASH [None]
  - PRODUCT QUALITY ISSUE [None]
  - DRUG DOSE OMISSION [None]
  - PAIN [None]
  - APPLICATION SITE VESICLES [None]
